FAERS Safety Report 13307596 (Version 1)
Quarter: 2017Q1

REPORT INFORMATION
  Report Type: Spontaneous
  Country: GB (occurrence: GB)
  Receive Date: 20170308
  Receipt Date: 20170308
  Transmission Date: 20170428
  Serious: Yes (Other)
  Sender: FDA-Public Use
  Company Number: GB-JNJFOC-20170306332

PATIENT
  Age: 44 Year
  Sex: Male
  Weight: 71.66 kg

DRUGS (3)
  1. ITRACONAZOLE. [Suspect]
     Active Substance: ITRACONAZOLE
     Indication: FUNGAL INFECTION
     Dosage: WITH FOOD
     Route: 048
     Dates: start: 20170219, end: 20170221
  2. ITRACONAZOLE. [Suspect]
     Active Substance: ITRACONAZOLE
     Indication: FUNGAL INFECTION
     Route: 048
  3. TERBINAFINE. [Concomitant]
     Active Substance: TERBINAFINE
     Route: 065

REACTIONS (5)
  - Dizziness [Recovering/Resolving]
  - Disorientation [Recovering/Resolving]
  - Malaise [Recovering/Resolving]
  - Disturbance in attention [Recovering/Resolving]
  - Paraesthesia [Recovering/Resolving]

NARRATIVE: CASE EVENT DATE: 20170221
